FAERS Safety Report 11129454 (Version 1)
Quarter: 2015Q2

REPORT INFORMATION
  Report Type: Spontaneous
  Country: BR (occurrence: BR)
  Receive Date: 20150521
  Receipt Date: 20150521
  Transmission Date: 20150821
  Serious: Yes (Hospitalization, Disabling)
  Sender: FDA-Public Use
  Company Number: BR-ELI_LILLY_AND_COMPANY-BR201505003655

PATIENT
  Age: 90 Year
  Sex: Male
  Weight: 70 kg

DRUGS (4)
  1. ACFOL [Concomitant]
     Active Substance: FOLIC ACID
     Dosage: 5 MG, QD
     Route: 065
  2. HUMALOG [Suspect]
     Active Substance: INSULIN LISPRO
     Indication: DIABETES MELLITUS
     Dosage: 10 IU, EACH MORNING
     Route: 058
     Dates: start: 2000
  3. CARVEDILOL. [Concomitant]
     Active Substance: CARVEDILOL
     Dosage: 3.125 MG, BID
     Route: 065
     Dates: start: 1985
  4. HUMALOG [Suspect]
     Active Substance: INSULIN LISPRO
     Dosage: 12 IU, EACH EVENING
     Route: 058
     Dates: start: 2000

REACTIONS (4)
  - Gait disturbance [Unknown]
  - Fall [Recovered/Resolved]
  - Weight decreased [Recovered/Resolved]
  - Femur fracture [Recovered/Resolved]

NARRATIVE: CASE EVENT DATE: 201410
